FAERS Safety Report 11186777 (Version 2)
Quarter: 2015Q3

REPORT INFORMATION
  Report Type: Other
  Country: IT (occurrence: IT)
  Receive Date: 20150613
  Receipt Date: 20150831
  Transmission Date: 20151125
  Serious: Yes (Hospitalization)
  Sender: FDA-Public Use
  Company Number: IT-MYLANLABS-2015M1018925

PATIENT

DRUGS (1)
  1. TERAZOSIN HYDROCHLORIDE. [Suspect]
     Active Substance: TERAZOSIN HYDROCHLORIDE
     Indication: PRODUCT USED FOR UNKNOWN INDICATION
     Dosage: 1 DF DAILY
     Route: 048
     Dates: start: 20150505

REACTIONS (3)
  - Medication error [Recovered/Resolved]
  - Hypotension [Recovered/Resolved]
  - Presyncope [Recovered/Resolved]

NARRATIVE: CASE EVENT DATE: 20150505
